FAERS Safety Report 9131527 (Version 2)
Quarter: 2013Q1

REPORT INFORMATION
  Report Type: Spontaneous
  Country: IN (occurrence: IN)
  Receive Date: 20130301
  Receipt Date: 20130329
  Transmission Date: 20140127
  Serious: Yes (Other)
  Sender: FDA-Public Use
  Company Number: IN-MERCK-1302IND013755

PATIENT
  Sex: Male

DRUGS (1)
  1. JANUMET [Suspect]
     Dosage: 2 DF, QD
     Route: 048

REACTIONS (3)
  - Monoplegia [Unknown]
  - Sensory disturbance [Unknown]
  - Diabetes mellitus [Unknown]
